FAERS Safety Report 5175317-6 (Version None)
Quarter: 2006Q4

REPORT INFORMATION
  Report Type: 
  Country: None (occurrence: None)
  Receive Date: 20061212
  Receipt Date: 20061212
  Transmission Date: 20070319
  Serious: Yes (Death, Hospitalization)
  Sender: FDA-Public Use
  Company Number: None

PATIENT
  Sex: Male
  Weight: 89 kg

DRUGS (2)
  1. CYTARABINE [Suspect]
     Dosage: 2450 MG
     Dates: end: 20061002
  2. DAUNORUBICIN HCL [Suspect]
     Dosage: 610 MG
     Dates: end: 20060929

REACTIONS (13)
  - ANOREXIA [None]
  - CATHETER RELATED INFECTION [None]
  - CLOSTRIDIUM DIFFICILE TOXIN TEST POSITIVE [None]
  - DIARRHOEA [None]
  - EMPHYSEMA [None]
  - NAUSEA [None]
  - PLEURAL EFFUSION [None]
  - PULMONARY OEDEMA [None]
  - PULMONARY THROMBOSIS [None]
  - REFUSAL OF TREATMENT BY PATIENT [None]
  - RENAL FAILURE [None]
  - STAPHYLOCOCCAL INFECTION [None]
  - URINARY RETENTION [None]
